FAERS Safety Report 4646736-9 (Version None)
Quarter: 2005Q2

REPORT INFORMATION
  Report Type: 
  Country: None (occurrence: None)
  Receive Date: 20050427
  Receipt Date: 20050422
  Transmission Date: 20051028
  Serious: Yes (Other)
  Sender: FDA-Public Use
  Company Number: FR-GLAXOSMITHKLINE-B0378940A

PATIENT
  Age: 50 Year
  Sex: Female

DRUGS (3)
  1. BECONASE [Suspect]
     Indication: ASTHMA
     Dosage: 2PUFF TWICE PER DAY
     Route: 055
  2. BECONASE [Suspect]
     Dosage: 2PUFF TWICE PER DAY
     Route: 055
     Dates: end: 20020101
  3. HORMONE REPLACEMENT THERAPY [Concomitant]
     Indication: MENOPAUSE
     Dates: start: 20000101

REACTIONS (6)
  - BLOOD PRESSURE DIASTOLIC INCREASED [None]
  - FAT TISSUE INCREASED [None]
  - MIGRAINE [None]
  - ROSACEA [None]
  - SKIN ATROPHY [None]
  - SUBCUTANEOUS HAEMATOMA [None]
